FAERS Safety Report 4432917-6 (Version None)
Quarter: 2004Q3

REPORT INFORMATION
  Report Type: 
  Country: None (occurrence: None)
  Receive Date: 20040825
  Receipt Date: 20040819
  Transmission Date: 20050211
  Serious: Yes (Life-Threatening, Disabling, Other)
  Sender: FDA-Public Use
  Company Number: US-MERCK-0408USA01641

PATIENT
  Age: 59 Year
  Sex: Female

DRUGS (8)
  1. TYLENOL EXTENDED RELIEF CAPLETS [Concomitant]
     Route: 065
  2. ALBUTEROL [Concomitant]
     Route: 065
  3. CIMETIDINE [Concomitant]
     Route: 065
  4. ESTRADIOL [Concomitant]
     Route: 065
  5. LORAZEPAM [Concomitant]
     Route: 065
  6. PAXIL [Concomitant]
     Route: 065
  7. VIOXX [Suspect]
     Indication: OSTEOARTHRITIS
     Route: 048
     Dates: end: 20040713
  8. IMITREX [Concomitant]
     Route: 065

REACTIONS (1)
  - ORAL LICHEN PLANUS [None]
